FAERS Safety Report 6135703-4 (Version None)
Quarter: 2009Q1

REPORT INFORMATION
  Report Type: 
  Country: None (occurrence: None)
  Receive Date: 20090327
  Receipt Date: 20090319
  Transmission Date: 20090719
  Serious: Yes (Hospitalization)
  Sender: FDA-Public Use
  Company Number: AU-ABBOTT-08P-008-0490883-02

PATIENT
  Sex: Female
  Weight: 75 kg

DRUGS (9)
  1. HUMIRA [Suspect]
     Indication: RHEUMATOID ARTHRITIS
     Route: 058
     Dates: start: 20031127, end: 20081127
  2. HUMIRA [Suspect]
     Dates: start: 20090108
  3. ALDOMET [Concomitant]
     Indication: HYPERTENSION
     Route: 048
     Dates: start: 20080805
  4. METHOTREXATE [Concomitant]
     Indication: RHEUMATOID ARTHRITIS
     Dates: start: 20080830, end: 20081202
  5. METHOTREXATE [Concomitant]
     Route: 048
     Dates: start: 20081208
  6. FERROUS FUMARATE W/FOLIC ACID [Concomitant]
     Indication: HAEMOGLOBIN DECREASED
     Dosage: 310 MG/350 MG
     Route: 048
     Dates: start: 20080318
  7. ASPIRIN [Concomitant]
     Indication: TRANSIENT ISCHAEMIC ATTACK
     Route: 048
     Dates: start: 20080924
  8. PANTOPRAZOLE SODIUM [Concomitant]
     Indication: MALLORY-WEISS SYNDROME
     Dates: start: 20080823
  9. ACETAMINOPHEN [Concomitant]
     Indication: RHEUMATOID ARTHRITIS
     Route: 048
     Dates: start: 20080924

REACTIONS (1)
  - UROSEPSIS [None]
